FAERS Safety Report 10812234 (Version 1)
Quarter: 2015Q1

REPORT INFORMATION
  Report Type: Spontaneous
  Country: GB (occurrence: GB)
  Receive Date: 20150218
  Receipt Date: 20150218
  Transmission Date: 20150721
  Serious: Yes (Hospitalization)
  Sender: FDA-Public Use
  Company Number: GB-AUROBINDO-AUR-APL-2015-01248

PATIENT
  Age: 68 Year
  Sex: Male
  Weight: 65 kg

DRUGS (2)
  1. OLANZAPINE. [Concomitant]
     Active Substance: OLANZAPINE
     Indication: SCHIZOPHRENIA
     Dosage: 2.5 MG, UNK
     Route: 065
     Dates: start: 2012
  2. RAMIPRIL 1.25MG (RAMIPRIL) UNKNOWN, 1.25MG [Suspect]
     Active Substance: RAMIPRIL
     Indication: ANGINA PECTORIS
     Dosage: 1.25 MG, TWO TIMES A DAY
     Route: 065
     Dates: start: 2011, end: 20150122

REACTIONS (5)
  - Insomnia [None]
  - Insomnia [Recovered/Resolved]
  - Depression [Recovered/Resolved]
  - Chest pain [Recovered/Resolved]
  - Restlessness [Recovered/Resolved]
